FAERS Safety Report 9878297 (Version 1)
Quarter: 2014Q1

REPORT INFORMATION
  Report Type: Spontaneous
  Country: US (occurrence: US)
  Receive Date: 20140206
  Receipt Date: 20140206
  Transmission Date: 20141002
  Serious: No
  Sender: FDA-Public Use
  Company Number: US-ALLERGAN-1310983US

PATIENT
  Age: 66 Year
  Sex: Female

DRUGS (4)
  1. BOTOX [Suspect]
     Indication: DYSTONIA
     Dosage: UNK
     Dates: start: 201305, end: 201305
  2. BOTOX [Suspect]
     Dosage: UNK, SINGLE
     Dates: start: 201301, end: 201301
  3. BOTOX [Suspect]
     Dosage: UNK, SINGLE
     Dates: start: 201209, end: 201209
  4. ARTANE [Concomitant]
     Indication: DYSTONIA
     Dosage: UNK

REACTIONS (4)
  - Off label use [Unknown]
  - Fatigue [Recovered/Resolved]
  - Muscular weakness [Recovered/Resolved]
  - Muscular weakness [Recovered/Resolved]
